FAERS Safety Report 10039335 (Version 1)
Quarter: 2014Q1

REPORT INFORMATION
  Report Type: Spontaneous
  Country: US (occurrence: None)
  Receive Date: 20140318
  Receipt Date: 20140318
  Transmission Date: 20141002
  Serious: Yes (Other)
  Sender: FDA-Public Use
  Company Number: 2013CT000120

PATIENT
  Age: 48 Year
  Sex: Female
  Weight: 85.73 kg

DRUGS (9)
  1. KORLYM [Suspect]
     Indication: CUSHING^S SYNDROME
     Route: 048
     Dates: start: 20130828
  2. BABY ASPIRIN [Concomitant]
  3. A-VITAMIN [Concomitant]
  4. FUROSEMIDE [Concomitant]
  5. LISINOPRIL [Concomitant]
  6. METOPROLOL [Concomitant]
  7. PLAVIX [Concomitant]
  8. KLOR-CON [Concomitant]
  9. ATORVASTATIN [Concomitant]

REACTIONS (4)
  - Vomiting [None]
  - Diarrhoea [None]
  - Nausea [None]
  - Dehydration [None]
